FAERS Safety Report 9415201 (Version 2)
Quarter: 2013Q3

REPORT INFORMATION
  Report Type: Spontaneous
  Country: JP (occurrence: JP)
  Receive Date: 20130723
  Receipt Date: 20130726
  Transmission Date: 20140515
  Serious: Yes (Other)
  Sender: FDA-Public Use
  Company Number: JP-ROCHE-1251574

PATIENT
  Age: 36 Year
  Sex: Female

DRUGS (2)
  1. CEFTRIAXONE SODIUM [Suspect]
     Indication: WHIPPLE^S DISEASE
     Route: 065
  2. SULFAMETHOXAZOLE/TRIMETHOPRIM [Suspect]
     Indication: WHIPPLE^S DISEASE
     Route: 065

REACTIONS (2)
  - Endocarditis [Recovering/Resolving]
  - Meningitis [Recovering/Resolving]
